FAERS Safety Report 6055761-5 (Version None)
Quarter: 2009Q1

REPORT INFORMATION
  Report Type: 
  Country: None (occurrence: None)
  Receive Date: 20090128
  Receipt Date: 20090122
  Transmission Date: 20090719
  Serious: Yes (Death)
  Sender: FDA-Public Use
  Company Number: US-WATSON-2009-00367

PATIENT
  Sex: Female

DRUGS (1)
  1. FENTANYL-75 [Suspect]
     Indication: DRUG USE FOR UNKNOWN INDICATION
     Dosage: UNK
     Route: 062
     Dates: start: 20080101, end: 20080209

REACTIONS (3)
  - DRUG LEVEL INCREASED [None]
  - DRUG TOXICITY [None]
  - OVERDOSE [None]
